FAERS Safety Report 7739572-8 (Version None)
Quarter: 2011Q3

REPORT INFORMATION
  Report Type: 
  Country: None (occurrence: None)
  Receive Date: 20110909
  Receipt Date: 20110825
  Transmission Date: 20111222
  Serious: Yes (Hospitalization, Other)
  Sender: FDA-Public Use
  Company Number: DE-WATSON-2011-13573

PATIENT
  Sex: Male
  Weight: 3.95 kg

DRUGS (4)
  1. ACETAMINOPHEN [Concomitant]
     Indication: MIGRAINE
     Dosage: 4 - 5 DF PER MONTH
     Route: 064
  2. FOLIC ACID W/MINERALS NOS/VITAMINS NOS [Concomitant]
     Indication: PROPHYLAXIS OF NEURAL TUBE DEFECT
     Dosage: 0.4 MG, DAILY
     Route: 064
     Dates: start: 20090601, end: 20100811
  3. METOPROLOL TARTRATE [Suspect]
     Indication: SUPRAVENTRICULAR TACHYCARDIA
     Dosage: 49.5 MG, DAILY
     Route: 064
     Dates: start: 20100626, end: 20110217
  4. NEBIVOLOL HCL [Concomitant]
     Indication: SUPRAVENTRICULAR TACHYCARDIA
     Dosage: UNK
     Route: 064
     Dates: start: 20100509, end: 20100625

REACTIONS (1)
  - SUPRAVENTRICULAR TACHYCARDIA [None]
